FAERS Safety Report 12763143 (Version 2)
Quarter: 2016Q4

REPORT INFORMATION
  Report Type: Report from Study
  Country: US (occurrence: US)
  Receive Date: 20160920
  Receipt Date: 20161019
  Transmission Date: 20170207
  Serious: Yes (Other)
  Sender: FDA-Public Use
  Company Number: US-MALLINCKRODT-T201604034

PATIENT
  Age: 33 Year
  Sex: Male

DRUGS (3)
  1. TOPAMAX [Concomitant]
     Active Substance: TOPIRAMATE
  2. IRON [Concomitant]
     Active Substance: IRON
  3. REPOSITORY CORTICOTROPIN INJECTION [Suspect]
     Active Substance: CORTICOTROPIN
     Indication: SARCOIDOSIS
     Dosage: 80U/1ML, 2X/WEEKLY ON TUES + FRI
     Route: 058
     Dates: start: 20150911

REACTIONS (9)
  - Intracranial pressure increased [Not Recovered/Not Resolved]
  - Vomiting [Recovering/Resolving]
  - Headache [Recovering/Resolving]
  - Sensation of foreign body [Recovering/Resolving]
  - Hypersensitivity [Recovering/Resolving]
  - Microcytic anaemia [Not Recovered/Not Resolved]
  - Middle ear effusion [Not Recovered/Not Resolved]
  - Pyrexia [Recovering/Resolving]
  - Malaise [Unknown]

NARRATIVE: CASE EVENT DATE: 20160822
